FAERS Safety Report 6044555-2 (Version None)
Quarter: 2009Q1

REPORT INFORMATION
  Report Type: 
  Country: None (occurrence: None)
  Receive Date: 20090120
  Receipt Date: 20090112
  Transmission Date: 20090719
  Serious: Yes (Life-Threatening)
  Sender: FDA-Public Use
  Company Number: NL-ABBOTT-09P-114-0496670-00

PATIENT
  Age: 60 Year
  Sex: Female

DRUGS (5)
  1. DEPAKENE [Suspect]
     Indication: EPILEPSY
     Route: 048
     Dates: start: 20081215, end: 20081219
  2. DEPAKENE [Suspect]
     Route: 048
     Dates: start: 20081219, end: 20081221
  3. CITALOPRAM HYDROBROMIDE [Concomitant]
     Indication: AFFECTIVE DISORDER
     Route: 065
     Dates: start: 20060625
  4. CLOPENTHIXOL HYDROCHLORIDE [Concomitant]
     Indication: ABNORMAL BEHAVIOUR
     Route: 048
     Dates: start: 20050101
  5. METOCLOPRAMIDE [Concomitant]
     Indication: ERUCTATION
     Route: 048
     Dates: start: 20071029

REACTIONS (4)
  - ACCIDENTAL OVERDOSE [None]
  - APATHY [None]
  - DEPRESSED LEVEL OF CONSCIOUSNESS [None]
  - DRUG DISPENSING ERROR [None]
